FAERS Safety Report 6463091-2 (Version None)
Quarter: 2009Q4

REPORT INFORMATION
  Report Type: 
  Country: None (occurrence: None)
  Receive Date: 20091124
  Receipt Date: 20091112
  Transmission Date: 20100525
  Serious: Yes (Other)
  Sender: FDA-Public Use
  Company Number: 232607J09USA

PATIENT
  Age: 56 Year
  Sex: Female

DRUGS (4)
  1. REBIF [Suspect]
     Indication: MULTIPLE SCLEROSIS
     Dosage: 44 MCG, 3 IN 1 WEEKS, SUBCUTANEOUS
     Route: 058
     Dates: start: 20090730
  2. LEVOTHYROXINE (LEVETHOYROXINE /00068001/) [Concomitant]
  3. CITALOPRAM (CITALOPRAM /00582601/) [Concomitant]
  4. ATIVAN [Concomitant]

REACTIONS (3)
  - DYSURIA [None]
  - RENAL CYST [None]
  - RENAL IMPAIRMENT [None]
